FAERS Safety Report 19462027 (Version 2)
Quarter: 2021Q4

REPORT INFORMATION
  Report Type: Spontaneous
  Country: DE (occurrence: DE)
  Receive Date: 20210625
  Receipt Date: 20211018
  Transmission Date: 20220303
  Serious: Yes (Other)
  Sender: FDA-Public Use
  Company Number: DE-MEDAC-OVA20190162

PATIENT
  Sex: Female
  Weight: 70 kg

DRUGS (6)
  1. GEMCITABINE HYDROCHLORIDE [Suspect]
     Active Substance: GEMCITABINE HYDROCHLORIDE
     Indication: Ovarian germ cell choriocarcinoma stage III
     Dosage: 1509 MG, CYCLICAL (ON DAY 1 AND 8, CYCLICAL DAY 28)
     Route: 065
     Dates: start: 20180925, end: 20181127
  2. TREOSULFAN [Suspect]
     Active Substance: TREOSULFAN
     Indication: Ovarian germ cell choriocarcinoma stage III
     Dosage: 9432 MG, CYCLICAL
     Route: 041
     Dates: start: 20180925
  3. DEXAMETHASONE [Concomitant]
     Active Substance: DEXAMETHASONE
     Indication: Prophylaxis
     Dosage: 4 MG, UNKNOWN (DAY 1 OF CHEMOTHERAPY)
     Route: 048
     Dates: start: 20180925, end: 20181127
  4. ONDANSETRON [Concomitant]
     Active Substance: ONDANSETRON
     Indication: Prophylaxis
     Dosage: 8 MG, UNKNOWN (DAY 1 OF CHEMOTHERAPY)
     Route: 048
     Dates: start: 20180925, end: 20181127
  5. PANTOPRAZOLE [Concomitant]
     Active Substance: PANTOPRAZOLE
     Indication: Prophylaxis
     Dosage: UNK, UNKNOWN
     Route: 048
  6. ZOPICLONE [Concomitant]
     Active Substance: ZOPICLONE
     Indication: Sleep disorder
     Dosage: 7.5 MG, UNKNOWN
     Route: 048
     Dates: start: 20150713

REACTIONS (1)
  - Platelet count decreased [Recovered/Resolved]

NARRATIVE: CASE EVENT DATE: 20181204
